FAERS Safety Report 21480507 (Version 1)
Quarter: 2022Q4

REPORT INFORMATION
  Report Type: Spontaneous
  Country: US (occurrence: US)
  Receive Date: 20221019
  Receipt Date: 20221019
  Transmission Date: 20230113
  Serious: Yes (Hospitalization)
  Sender: FDA-Public Use
  Company Number: US-BRISTOL-MYERS SQUIBB COMPANY-2022-119871

PATIENT
  Age: 59 Year
  Sex: Female

DRUGS (1)
  1. POMALYST [Suspect]
     Active Substance: POMALIDOMIDE
     Indication: Product used for unknown indication
     Dosage: AKE 1 CAPSULE BY MOUTH EVERY DAY FOR 7 DAYS ON FOLLOWED BY 7 DAYS OFF
     Route: 065

REACTIONS (4)
  - Drug hypersensitivity [Unknown]
  - Asthenia [Unknown]
  - Dizziness [Unknown]
  - Off label use [Unknown]
